FAERS Safety Report 7305281-2 (Version None)
Quarter: 2011Q1

REPORT INFORMATION
  Report Type: 
  Country: None (occurrence: None)
  Receive Date: 20110222
  Receipt Date: 20110214
  Transmission Date: 20110831
  Serious: Yes (Other)
  Sender: FDA-Public Use
  Company Number: DE-PFIZER INC-2011032371

PATIENT
  Age: 50 Year
  Sex: Male

DRUGS (1)
  1. ECALTA [Suspect]
     Dosage: GIVEN FOR 10 DAYS

REACTIONS (2)
  - THROMBOCYTOPENIA [None]
  - BONE MARROW FAILURE [None]
